FAERS Safety Report 9097706 (Version 1)
Quarter: 2013Q1

REPORT INFORMATION
  Report Type: Spontaneous
  Country: MX (occurrence: MX)
  Receive Date: 20130212
  Receipt Date: 20130212
  Transmission Date: 20140127
  Serious: Yes (Other)
  Sender: FDA-Public Use
  Company Number: PHHY2013MX012980

PATIENT
  Age: 62 Year
  Sex: Female

DRUGS (4)
  1. TEGRETOL [Suspect]
     Indication: NEUROPATHY PERIPHERAL
     Dosage: 5 DF, (200 MG) DAILY
     Route: 048
     Dates: start: 201204
  2. GLUCOPHAGE [Concomitant]
     Dosage: 2 DF, DAILY
     Dates: start: 201204
  3. LYRICA [Concomitant]
     Indication: NEUROPATHY PERIPHERAL
     Dosage: 2 DF DAILY
     Dates: start: 201204
  4. NEXIUM-MUPS//ESOMEPRAZOLE MAGNESIUM [Concomitant]
     Indication: PROPHYLAXIS
     Dosage: 1 DF DAILY
     Dates: start: 201204

REACTIONS (3)
  - Facial bones fracture [Not Recovered/Not Resolved]
  - Fall [Not Recovered/Not Resolved]
  - Abnormal dreams [Not Recovered/Not Resolved]
